FAERS Safety Report 23057354 (Version 1)
Quarter: 2023Q4

REPORT INFORMATION
  Report Type: Spontaneous
  Country: NO (occurrence: NO)
  Receive Date: 20231012
  Receipt Date: 20231012
  Transmission Date: 20240110
  Serious: Yes (Other)
  Sender: FDA-Public Use
  Company Number: NO-ALIMERA SCIENCES LIMITED-NO-A16013-23-000211

PATIENT

DRUGS (2)
  1. ILUVIEN [Suspect]
     Active Substance: FLUOCINOLONE ACETONIDE
     Indication: Macular oedema
     Dosage: 0.25 MICROGRAM, QD - RIGHT EYE
     Route: 031
     Dates: start: 20220302
  2. ILUVIEN [Suspect]
     Active Substance: FLUOCINOLONE ACETONIDE
     Indication: Uveitis

REACTIONS (5)
  - Anterior chamber inflammation [Unknown]
  - Eye pain [Unknown]
  - Vision blurred [Unknown]
  - Corneal oedema [Unknown]
  - Device dislocation [Unknown]

NARRATIVE: CASE EVENT DATE: 20230823
